FAERS Safety Report 18869472 (Version 1)
Quarter: 2021Q1

REPORT INFORMATION
  Report Type: Spontaneous
  Country: DE (occurrence: DE)
  Receive Date: 20210210
  Receipt Date: 20210210
  Transmission Date: 20210420
  Serious: Yes (Other)
  Sender: FDA-Public Use
  Company Number: DE-JNJFOC-20210215457

PATIENT

DRUGS (5)
  1. REMSIMA [Suspect]
     Active Substance: INFLIXIMAB
     Indication: CROHN^S DISEASE
     Dosage: 500 MG
     Dates: start: 20201210
  2. REMICADE [Suspect]
     Active Substance: INFLIXIMAB
     Indication: PRODUCT USED FOR UNKNOWN INDICATION
     Dosage: UNK
     Route: 042
     Dates: start: 2007, end: 20201015
  3. REMSIMA [Suspect]
     Active Substance: INFLIXIMAB
     Dosage: 500 MG, PACK SIZE (N2)
     Route: 042
  4. REMSIMA [Suspect]
     Active Substance: INFLIXIMAB
     Dosage: 500 MG
     Dates: start: 20201015
  5. PREDNISOLON [Concomitant]
     Active Substance: PREDNISOLONE
     Indication: DISEASE RECURRENCE

REACTIONS (2)
  - Breast cancer [Unknown]
  - Overdose [Unknown]

NARRATIVE: CASE EVENT DATE: 202012
